FAERS Safety Report 14273108 (Version 1)
Quarter: 2017Q4

REPORT INFORMATION
  Report Type: Spontaneous
  Country: US (occurrence: US)
  Receive Date: 20171212
  Receipt Date: 20171212
  Transmission Date: 20180321
  Serious: No
  Sender: FDA-Public Use
  Company Number: None

PATIENT
  Age: 41 Year
  Sex: Female

DRUGS (8)
  1. PAROXETINE. [Concomitant]
     Active Substance: PAROXETINE
  2. ALTERA HANDSET [Concomitant]
  3. ALBUTEROL. [Concomitant]
     Active Substance: ALBUTEROL
  4. COMPLETE FORMULATION D3000 [Concomitant]
  5. CREON [Concomitant]
     Active Substance: PANCRELIPASE AMYLASE\PANCRELIPASE LIPASE\PANCRELIPASE PROTEASE
  6. CAYSTON [Concomitant]
     Active Substance: AZTREONAM
  7. FLUCONAZOLE. [Concomitant]
     Active Substance: FLUCONAZOLE
  8. PULMOZYME [Suspect]
     Active Substance: DORNASE ALFA
     Indication: CYSTIC FIBROSIS
     Route: 048
     Dates: start: 20140219

REACTIONS (1)
  - Laryngitis [None]
